FAERS Safety Report 4377976-4 (Version None)
Quarter: 2004Q2

REPORT INFORMATION
  Report Type: 
  Country: None (occurrence: None)
  Receive Date: 20040601
  Receipt Date: 20040224
  Transmission Date: 20050107
  Serious: No
  Sender: FDA-Public Use
  Company Number: WAES 0402USA01865

PATIENT
  Age: 53 Year
  Sex: Male
  Weight: 84.8226 kg

DRUGS (3)
  1. ZETIA [Suspect]
     Indication: BLOOD CHOLESTEROL INCREASED
     Dosage: 10MG/DAILY/PO
     Route: 048
     Dates: start: 20031031, end: 20040224
  2. ZETIA [Suspect]
     Indication: HYPERLIPIDAEMIA
     Dosage: 10MG/DAILY/PO
     Route: 048
     Dates: start: 20031031, end: 20040224
  3. ASPIRIN [Concomitant]

REACTIONS (1)
  - HEPATIC ENZYME INCREASED [None]
